FAERS Safety Report 9412575 (Version 2)
Quarter: 2013Q3

REPORT INFORMATION
  Report Type: Spontaneous
  Country: US (occurrence: None)
  Receive Date: 20130627
  Receipt Date: 20130807
  Transmission Date: 20140515
  Serious: Yes (Hospitalization)
  Sender: FDA-Public Use
  Company Number: 2012P1066649

PATIENT
  Age: 53 Year
  Sex: Male

DRUGS (5)
  1. INFUMORPH [Suspect]
     Indication: PAIN
     Dates: start: 200103, end: 2012
  2. INFUMORPH [Suspect]
     Indication: LUMBAR RADICULOPATHY
     Dates: start: 200103, end: 2012
  3. DILAUDID [Suspect]
     Indication: PAIN
     Dosage: 1,5 MG;QD
     Dates: end: 2012
  4. DILAUDID [Suspect]
     Indication: LUMBAR RADICULOPATHY
     Dosage: 1,5 MG;QD
     Dates: end: 2012
  5. AMBIEN [Concomitant]

REACTIONS (5)
  - Device dislocation [None]
  - Infusion site granuloma [None]
  - Incorrect route of drug administration [None]
  - Therapeutic response decreased [None]
  - Device battery issue [None]
